FAERS Safety Report 14240119 (Version 1)
Quarter: 2017Q4

REPORT INFORMATION
  Report Type: Not Available
  Country: CN (occurrence: CN)
  Receive Date: 20171130
  Receipt Date: 20171130
  Transmission Date: 20180321
  Serious: Yes (Other)
  Sender: FDA-Public Use
  Company Number: CN-ABBVIE-17P-035-2178762-00

PATIENT
  Age: 55 Year
  Sex: Male

DRUGS (2)
  1. DEPAKINE CHRONO [Suspect]
     Active Substance: VALPROATE SODIUM
     Dosage: SUSTAINED RELEASE TABLETS
     Route: 048
     Dates: end: 2017
  2. DEPAKINE CHRONO [Suspect]
     Active Substance: VALPROATE SODIUM
     Indication: EPILEPSY
     Dosage: TABLET, EXTENDED RELEASE
     Route: 048
     Dates: start: 20171119

REACTIONS (6)
  - Gaze palsy [Recovered/Resolved]
  - Drug withdrawal convulsions [Recovered/Resolved]
  - Epilepsy [Recovered/Resolved]
  - Condition aggravated [Recovered/Resolved]
  - Facial spasm [Recovered/Resolved]
  - Self-medication [Unknown]

NARRATIVE: CASE EVENT DATE: 201706
